FAERS Safety Report 9152140 (Version 1)
Quarter: 2013Q1

REPORT INFORMATION
  Report Type: Spontaneous
  Country: US (occurrence: US)
  Receive Date: 20130308
  Receipt Date: 20130308
  Transmission Date: 20140127
  Serious: Yes (Death, Other)
  Sender: FDA-Public Use
  Company Number: US-TEVA-390192USA

PATIENT
  Sex: Female

DRUGS (3)
  1. DIPHENHYDRAMINE [Suspect]
  2. QUETIAPINE [Suspect]
  3. PARACETAMOL [Suspect]
     Route: 001

REACTIONS (1)
  - Death [Fatal]
